FAERS Safety Report 10160990 (Version 1)
Quarter: 2014Q2

REPORT INFORMATION
  Report Type: Spontaneous
  Country: US (occurrence: US)
  Receive Date: 20140508
  Receipt Date: 20140508
  Transmission Date: 20141212
  Serious: No
  Sender: FDA-Public Use
  Company Number: US-009507513-2012SP023416

PATIENT
  Age: 2 Year
  Sex: Female
  Weight: 14.6 kg

DRUGS (2)
  1. CLARITIN ORAL SOLUTION [Suspect]
     Indication: HYPERSENSITIVITY
     Dosage: 5 MG, QD
     Route: 048
  2. CLARITIN ORAL SOLUTION [Suspect]
     Dosage: 5 MG, BID
     Route: 048
     Dates: start: 20120321

REACTIONS (1)
  - Overdose [Recovering/Resolving]
